FAERS Safety Report 21853852 (Version 1)
Quarter: 2023Q1

REPORT INFORMATION
  Report Type: Spontaneous
  Country: US (occurrence: None)
  Receive Date: 20230112
  Receipt Date: 20230112
  Transmission Date: 20230417
  Serious: Yes (Other)
  Sender: FDA-Public Use
  Company Number: US-Shield TX (UK) Ltd-US-STX-23-00001

PATIENT
  Age: 83 Year
  Sex: Female

DRUGS (1)
  1. ACCRUFER [Suspect]
     Active Substance: FERRIC MALTOL
     Indication: Product used for unknown indication
     Route: 048
     Dates: start: 20221011, end: 20221230

REACTIONS (1)
  - Abdominal pain upper [Unknown]
